FAERS Safety Report 21980512 (Version 5)
Quarter: 2023Q2

REPORT INFORMATION
  Report Type: Report from Study
  Country: US (occurrence: US)
  Receive Date: 20230211
  Receipt Date: 20230509
  Transmission Date: 20230722
  Serious: Yes (Other)
  Sender: FDA-Public Use
  Company Number: US-002147023-NVSC2023US027287

PATIENT
  Sex: Female

DRUGS (1)
  1. ENTRESTO [Suspect]
     Active Substance: SACUBITRIL\VALSARTAN
     Indication: Product used for unknown indication
     Dosage: UNK
     Route: 065
     Dates: start: 202212

REACTIONS (7)
  - Loss of consciousness [Unknown]
  - Feeling abnormal [Unknown]
  - Fall [Unknown]
  - Head injury [Unknown]
  - Hypotension [Unknown]
  - Dizziness [Recovering/Resolving]
  - Product dose omission in error [Unknown]
